FAERS Safety Report 5898892-2 (Version None)
Quarter: 2008Q3

REPORT INFORMATION
  Report Type: 
  Country: None (occurrence: None)
  Receive Date: 20080925
  Receipt Date: 20080911
  Transmission Date: 20090109
  Serious: Yes (Hospitalization)
  Sender: FDA-Public Use
  Company Number: FR-TYCO HEALTHCARE/MALLINCKRODT-T200801497

PATIENT

DRUGS (3)
  1. METHADOSE [Suspect]
     Indication: DRUG DEPENDENCE
     Dosage: 60 MG, SINGLE
  2. METHADOSE [Suspect]
     Dosage: 40 MG, SINGLE
  3. OPIOIDS [Concomitant]
     Indication: DRUG DEPENDENCE

REACTIONS (5)
  - CARDIAC FAILURE CONGESTIVE [None]
  - CARDIOGENIC SHOCK [None]
  - COMA [None]
  - DRUG TOLERANCE DECREASED [None]
  - PULMONARY CONGESTION [None]
